FAERS Safety Report 4876072-7 (Version None)
Quarter: 2006Q1

REPORT INFORMATION
  Report Type: 
  Country: None (occurrence: None)
  Receive Date: 20060106
  Receipt Date: 20060106
  Transmission Date: 20060701
  Serious: Yes (Death)
  Sender: FDA-Public Use
  Company Number: None

PATIENT
  Sex: Male
  Weight: 70 kg

DRUGS (4)
  1. OXALIPLATIN [Suspect]
     Indication: COLON CANCER
     Dosage: SEE IMAGE
     Route: 042
     Dates: start: 20051221, end: 20051221
  2. LEUCOVORIN [Suspect]
     Dosage: SEE IMAGE
     Route: 042
     Dates: end: 20051221
  3. FLUOROURACIL [Suspect]
     Dosage: SEE IMAGE
     Route: 040
     Dates: end: 20051221
  4. FLUOROURACIL [Suspect]
     Dosage: SEE IMAGE
     Route: 042
     Dates: end: 20051221

REACTIONS (8)
  - ARRHYTHMIA [None]
  - CARDIAC ARREST [None]
  - FEELING COLD [None]
  - LOSS OF CONSCIOUSNESS [None]
  - PUPIL FIXED [None]
  - SKIN DISCOLOURATION [None]
  - VENTRICULAR ARRHYTHMIA [None]
  - VENTRICULAR FIBRILLATION [None]
